FAERS Safety Report 20972911 (Version 3)
Quarter: 2022Q3

REPORT INFORMATION
  Report Type: Spontaneous
  Country: PL (occurrence: PL)
  Receive Date: 20220617
  Receipt Date: 20220707
  Transmission Date: 20221027
  Serious: Yes (Other)
  Sender: FDA-Public Use
  Company Number: PL-002147023-NVSC2022PL126502

PATIENT
  Age: 38 Year
  Sex: Female

DRUGS (9)
  1. ESTRADIOL [Suspect]
     Active Substance: ESTRADIOL
     Indication: Product used for unknown indication
     Route: 065
     Dates: start: 20210305
  2. KISQALI [Suspect]
     Active Substance: RIBOCICLIB
     Indication: Breast cancer
     Dosage: 600 MILLIGRAM DAILY;
     Route: 065
  3. KISQALI [Suspect]
     Active Substance: RIBOCICLIB
     Dosage: 400 MILLIGRAM DAILY;
     Route: 065
  4. LETROZOLE [Suspect]
     Active Substance: LETROZOLE
     Indication: Product used for unknown indication
     Dosage: 2.5 MILLIGRAM DAILY;
     Route: 065
     Dates: start: 202112
  5. VITAMIN D3 [Suspect]
     Active Substance: CHOLECALCIFEROL
     Indication: Product used for unknown indication
     Route: 065
  6. DENOSUMAB [Suspect]
     Active Substance: DENOSUMAB
     Indication: Product used for unknown indication
     Route: 058
     Dates: start: 202104
  7. GONADORELIN DIACETATE TETRAHYDRATE [Suspect]
     Active Substance: GONADORELIN DIACETATE TETRAHYDRATE
     Indication: Product used for unknown indication
     Route: 058
     Dates: start: 202112
  8. CALCIUM [Suspect]
     Active Substance: CALCIUM
     Indication: Product used for unknown indication
     Route: 065
  9. ZOLEDRONIC ACID [Suspect]
     Active Substance: ZOLEDRONIC ACID
     Indication: Product used for unknown indication
     Route: 042

REACTIONS (3)
  - Alanine aminotransferase increased [Recovering/Resolving]
  - Aspartate aminotransferase increased [Recovering/Resolving]
  - Hepatic steatosis [Unknown]

NARRATIVE: CASE EVENT DATE: 20211201
